FAERS Safety Report 25666217 (Version 1)
Quarter: 2025Q3

REPORT INFORMATION
  Report Type: Spontaneous
  Country: US (occurrence: US)
  Receive Date: 20250811
  Receipt Date: 20250811
  Transmission Date: 20251020
  Serious: No
  Sender: ABBVIE
  Company Number: US-ABBVIE-6406938

PATIENT
  Sex: Female
  Weight: 87.5 kg

DRUGS (2)
  1. SKYRIZI [Suspect]
     Active Substance: RISANKIZUMAB-RZAA
     Indication: Product used for unknown indication
     Route: 058
  2. DUPIXENT [Suspect]
     Active Substance: DUPILUMAB
     Indication: Product used for unknown indication
     Dosage: STRENGTH 300 MG/2ML , DOSE FORM-SINGLE DOSE PRE-FILLED PEN
     Route: 058

REACTIONS (1)
  - Adverse drug reaction [Unknown]
